FAERS Safety Report 13511313 (Version 3)
Quarter: 2017Q2

REPORT INFORMATION
  Report Type: Report from Study
  Country: JP (occurrence: JP)
  Receive Date: 20170503
  Receipt Date: 20170622
  Transmission Date: 20170830
  Serious: Yes (Other)
  Sender: FDA-Public Use
  Company Number: JP-B.I. PHARMACEUTICALS,INC./RIDGEFIELD-2017-BI-023721

PATIENT
  Age: 46 Year
  Sex: Male
  Weight: 59 kg

DRUGS (1)
  1. BI 10773+BI 1356 [Suspect]
     Active Substance: EMPAGLIFLOZIN\LINAGLIPTIN
     Indication: TYPE 2 DIABETES MELLITUS
     Dosage: EMPAGLIFOZIN 25 MG + LINAGLIPTIN 5 MG
     Route: 065

REACTIONS (1)
  - Hepatitis E [Not Recovered/Not Resolved]

NARRATIVE: CASE EVENT DATE: 20170422
